FAERS Safety Report 8432264-1 (Version None)
Quarter: 2012Q2

REPORT INFORMATION
  Report Type: 
  Country: None (occurrence: None)
  Receive Date: 20120613
  Receipt Date: 20120607
  Transmission Date: 20120825
  Serious: Yes (Other)
  Sender: FDA-Public Use
  Company Number: PHHY2012AU049917

PATIENT
  Sex: Male

DRUGS (1)
  1. ZOLEDRONOC ACID [Suspect]
     Dosage: 5 MG, UNK
     Route: 042
     Dates: start: 20110321

REACTIONS (5)
  - PRESYNCOPE [None]
  - HYPERHIDROSIS [None]
  - PALLOR [None]
  - FEELING ABNORMAL [None]
  - YAWNING [None]
